FAERS Safety Report 9318919 (Version 1)
Quarter: 2013Q2

REPORT INFORMATION
  Report Type: Spontaneous
  Country: KR (occurrence: KR)
  Receive Date: 20130530
  Receipt Date: 20130530
  Transmission Date: 20140414
  Serious: Yes (Hospitalization)
  Sender: FDA-Public Use
  Company Number: KR-PFIZER INC-2013163097

PATIENT
  Age: 56 Year
  Sex: Male

DRUGS (1)
  1. SUTENE [Suspect]
     Indication: METASTATIC RENAL CELL CARCINOMA
     Dosage: 50 MG, 1X/DAY
     Dates: start: 2007

REACTIONS (4)
  - Upper gastrointestinal haemorrhage [Recovering/Resolving]
  - Gastrooesophageal reflux disease [Not Recovered/Not Resolved]
  - Hiatus hernia [Recovering/Resolving]
  - Abdominal pain upper [Recovering/Resolving]
